FAERS Safety Report 8531573-5 (Version None)
Quarter: 2012Q3

REPORT INFORMATION
  Report Type: 
  Country: None (occurrence: None)
  Receive Date: 20120723
  Receipt Date: 20120715
  Transmission Date: 20120928
  Serious: Yes (Other)
  Sender: FDA-Public Use
  Company Number: CA-JNJFOC-20120207553

PATIENT
  Sex: Male
  Weight: 83 kg

DRUGS (4)
  1. REMICADE [Suspect]
     Route: 042
     Dates: start: 20120224, end: 20120224
  2. REMICADE [Suspect]
     Route: 042
     Dates: start: 20110908
  3. REMICADE [Suspect]
     Route: 042
     Dates: start: 20110923
  4. REMICADE [Suspect]
     Indication: CROHN'S DISEASE
     Route: 042
     Dates: start: 20120210

REACTIONS (9)
  - ERYTHEMA [None]
  - PRURITUS [None]
  - FLUSHING [None]
  - RASH GENERALISED [None]
  - COUGH [None]
  - URTICARIA [None]
  - OROPHARYNGEAL DISCOMFORT [None]
  - INFUSION RELATED REACTION [None]
  - DYSPNOEA [None]
